FAERS Safety Report 4974421-2 (Version None)
Quarter: 2006Q2

REPORT INFORMATION
  Report Type: 
  Country: None (occurrence: None)
  Receive Date: 20060410
  Receipt Date: 20060330
  Transmission Date: 20061013
  Serious: Yes (Hospitalization, Other)
  Sender: FDA-Public Use
  Company Number: HQWYE649103FEB06

PATIENT
  Age: 77 Year
  Sex: Female

DRUGS (4)
  1. PANTOPRAZOLE SODIUM [Suspect]
     Dosage: 40 MG 1X PER 1 DAY
     Route: 048
     Dates: start: 20060115, end: 20060124
  2. CORDARONE [Concomitant]
  3. LASIX [Concomitant]
  4. ALLOPURINOL [Concomitant]

REACTIONS (2)
  - AGRANULOCYTOSIS [None]
  - DRUG TOXICITY [None]
